FAERS Safety Report 17168465 (Version 1)
Quarter: 2019Q4

REPORT INFORMATION
  Report Type: Spontaneous
  Country: US (occurrence: US)
  Receive Date: 20191218
  Receipt Date: 20191218
  Transmission Date: 20200122
  Serious: No
  Sender: FDA-Public Use
  Company Number: US-KYOWAKIRIN-2018BKK010755

PATIENT

DRUGS (5)
  1. SANCUSO [Suspect]
     Active Substance: GRANISETRON
     Dosage: APPLY 1 PATCH EVERY 7 DAYS (2ND PATCH)
     Route: 062
     Dates: start: 20181110
  2. SANCUSO [Suspect]
     Active Substance: GRANISETRON
     Dosage: APPLY 1 PATCH EVERY 7 DAYS (1ST PATCH)
     Route: 062
     Dates: start: 20181022, end: 2018
  3. CISPLATIN. [Suspect]
     Active Substance: CISPLATIN
     Indication: CHEMOTHERAPY
     Route: 065
  4. SANCUSO [Suspect]
     Active Substance: GRANISETRON
     Dosage: APPLY 1 PATCH EVERY 7 DAYS (3RD PATCH)
     Route: 062
     Dates: start: 20181117, end: 20181125
  5. SANCUSO [Suspect]
     Active Substance: GRANISETRON
     Indication: PROPHYLAXIS OF NAUSEA AND VOMITING
     Dosage: APPLY 1 PATCH EVERY 7 DAYS
     Route: 062
     Dates: start: 2016

REACTIONS (12)
  - Application site erythema [Unknown]
  - Application site pruritus [Not Recovered/Not Resolved]
  - Limb injury [Unknown]
  - Decreased appetite [Unknown]
  - Skin disorder [Unknown]
  - Application site inflammation [Unknown]
  - Application site mass [Not Recovered/Not Resolved]
  - Malaise [Unknown]
  - Drug ineffective [Unknown]
  - Gait inability [Unknown]
  - Inappropriate schedule of product administration [Recovered/Resolved]
  - Asthenia [Unknown]

NARRATIVE: CASE EVENT DATE: 201810
